FAERS Safety Report 25468209 (Version 1)
Quarter: 2025Q2

REPORT INFORMATION
  Report Type: Spontaneous
  Country: US (occurrence: US)
  Receive Date: 20250623
  Receipt Date: 20250623
  Transmission Date: 20250716
  Serious: No
  Sender: MERCK SHARP & DOHME LLC
  Company Number: US-009507513-2298055

PATIENT

DRUGS (10)
  1. SOTATERCEPT [Suspect]
     Active Substance: SOTATERCEPT
     Indication: Pulmonary arterial hypertension
     Dates: start: 20240618
  2. SOTATERCEPT [Suspect]
     Active Substance: SOTATERCEPT
  3. SOTATERCEPT [Suspect]
     Active Substance: SOTATERCEPT
  4. SOTATERCEPT [Suspect]
     Active Substance: SOTATERCEPT
  5. MACITENTAN [Concomitant]
     Active Substance: MACITENTAN
     Indication: Pulmonary arterial hypertension
  6. TADALAFIL [Concomitant]
     Active Substance: TADALAFIL
     Indication: Pulmonary arterial hypertension
  7. EPOPROSTENOL [Concomitant]
     Active Substance: EPOPROSTENOL
  8. EPOPROSTENOL [Concomitant]
     Active Substance: EPOPROSTENOL
     Dates: start: 202408, end: 202409
  9. EPOPROSTENOL [Concomitant]
     Active Substance: EPOPROSTENOL
  10. EPOPROSTENOL [Concomitant]
     Active Substance: EPOPROSTENOL
     Dates: start: 202410

REACTIONS (5)
  - Pain in jaw [Unknown]
  - Platelet count decreased [Unknown]
  - Flushing [Unknown]
  - Dizziness [Unknown]
  - Haemoglobin increased [Unknown]

NARRATIVE: CASE EVENT DATE: 20240901
